FAERS Safety Report 10620241 (Version 1)
Quarter: 2014Q4

REPORT INFORMATION
  Report Type: Spontaneous
  Country: HU (occurrence: None)
  Receive Date: 20141128
  Receipt Date: 20141128
  Transmission Date: 20150529
  Serious: Yes (Life-Threatening, Hospitalization, Other)
  Sender: FDA-Public Use
  Company Number: 2014COR00137

PATIENT
  Age: 55 Year
  Sex: Female

DRUGS (6)
  1. METOPROLOL [Concomitant]
     Active Substance: METOPROLOL
  2. ALLOPURINOL. [Concomitant]
     Active Substance: ALLOPURINOL
  3. GLULISINE INSULINE [Concomitant]
  4. GLARGINE INSULIN [Concomitant]
     Active Substance: INSULIN GLARGINE
  5. ALPRAZOLAM (ALPRAZOLAM) UNKNOWN [Suspect]
     Active Substance: ALPRAZOLAM
     Indication: PANIC DISORDER
  6. LEVOTHYROXINE [Concomitant]
     Active Substance: LEVOTHYROXINE

REACTIONS (9)
  - Phaeochromocytoma [None]
  - Pseudophaeochromocytoma [None]
  - Muscle twitching [None]
  - Drug dependence [None]
  - Encephalopathy [None]
  - Malignant hypertension [None]
  - Loss of consciousness [None]
  - Drug withdrawal syndrome [None]
  - Heart rate increased [None]
